FAERS Safety Report 9562566 (Version 2)
Quarter: 2014Q1

REPORT INFORMATION
  Report Type: Spontaneous
  Country: AU (occurrence: AU)
  Receive Date: 20130927
  Receipt Date: 20140109
  Transmission Date: 20141002
  Serious: Yes (Death)
  Sender: FDA-Public Use
  Company Number: AU-ROCHE-1277680

PATIENT
  Age: 26 Year
  Sex: Female
  Weight: 48 kg

DRUGS (2)
  1. AVASTIN [Suspect]
     Indication: OVARIAN CANCER
     Route: 042
     Dates: start: 20130501, end: 20130923
  2. TOPOTECAN [Suspect]
     Indication: OVARIAN CANCER
     Route: 042
     Dates: start: 20130501, end: 20130923

REACTIONS (1)
  - Intestinal perforation [Fatal]
